FAERS Safety Report 10398990 (Version 3)
Quarter: 2014Q4

REPORT INFORMATION
  Report Type: Report from Study
  Country: CN (occurrence: CN)
  Receive Date: 20140821
  Receipt Date: 20141212
  Transmission Date: 20150528
  Serious: Yes (Death, Hospitalization)
  Sender: FDA-Public Use
  Company Number: CN-PFIZER INC-2010102372

PATIENT
  Age: 57 Year
  Sex: Female
  Weight: 35 kg

DRUGS (3)
  1. AXITINIB [Suspect]
     Active Substance: AXITINIB
     Dosage: 3 MG, 2X/DAY
     Route: 048
     Dates: start: 20100830, end: 20110417
  2. AXITINIB [Suspect]
     Active Substance: AXITINIB
     Indication: METASTATIC RENAL CELL CARCINOMA
     Dosage: 5 MG, 2X/DAY
     Route: 048
     Dates: start: 20100729, end: 20100813
  3. ZOLEDRONIC ACID [Concomitant]
     Active Substance: ZOLEDRONIC ACID
     Indication: METASTASES TO BONE
     Dosage: 4 MG, QM
     Dates: start: 20100901

REACTIONS (3)
  - Metastatic renal cell carcinoma [Fatal]
  - Hypertension [Not Recovered/Not Resolved]
  - Disease progression [Fatal]

NARRATIVE: CASE EVENT DATE: 20100814
